FAERS Safety Report 10175766 (Version 1)
Quarter: 2014Q2

REPORT INFORMATION
  Report Type: Spontaneous
  Country: US (occurrence: None)
  Receive Date: 20140416
  Receipt Date: 20140416
  Transmission Date: 20141212
  Serious: Yes (Other)
  Sender: FDA-Public Use
  Company Number: 163-POMAL-13114369

PATIENT
  Age: 55 Year
  Sex: Male
  Weight: 104.33 kg

DRUGS (2)
  1. POMALYST [Suspect]
     Indication: PLASMA CELL MYELOMA
     Route: 048
     Dates: start: 201302
  2. DEXAMETHASONE (DEXAMETHASONE) [Concomitant]

REACTIONS (4)
  - Mental impairment [None]
  - Mental impairment [None]
  - Confusional state [None]
  - Rash [None]
